FAERS Safety Report 23761627 (Version 1)
Quarter: 2024Q2

REPORT INFORMATION
  Report Type: Spontaneous
  Country: PL (occurrence: PL)
  Receive Date: 20240419
  Receipt Date: 20240419
  Transmission Date: 20240716
  Serious: Yes (Hospitalization, Other)
  Sender: FDA-Public Use
  Company Number: PL-APOTEX-2017AP009519

PATIENT
  Age: 22 Year
  Sex: Female

DRUGS (23)
  1. MYCOPHENOLATE MOFETIL [Suspect]
     Active Substance: MYCOPHENOLATE MOFETIL
     Indication: Immunosuppressant drug therapy
     Dosage: UNK
     Route: 065
     Dates: start: 201207
  2. MYCOPHENOLATE MOFETIL [Suspect]
     Active Substance: MYCOPHENOLATE MOFETIL
     Indication: Immunosuppression
  3. PREDNISONE [Suspect]
     Active Substance: PREDNISONE
     Indication: Immunosuppressant drug therapy
     Dosage: UNK
     Route: 065
     Dates: start: 201207
  4. PREDNISONE [Suspect]
     Active Substance: PREDNISONE
     Indication: Immunosuppression
  5. TACROLIMUS [Suspect]
     Active Substance: TACROLIMUS
     Indication: Immunosuppressant drug therapy
     Dosage: UNK
     Route: 065
     Dates: start: 201207
  6. TACROLIMUS [Suspect]
     Active Substance: TACROLIMUS
     Indication: Immunosuppression
     Dosage: 0.5 MILLIGRAM, ONCE A DAY
     Route: 065
     Dates: start: 201302
  7. TACROLIMUS [Suspect]
     Active Substance: TACROLIMUS
     Dosage: 1.5 MILLIGRAM, ONCE A DAY
     Route: 065
     Dates: start: 2013
  8. RIBAVIRIN [Suspect]
     Active Substance: RIBAVIRIN
     Indication: Hepatitis C
     Dosage: 1200 MILLIGRAM, ONCE A DAY
     Route: 065
  9. RIBAVIRIN [Suspect]
     Active Substance: RIBAVIRIN
     Dosage: 2 DOSAGE FORM
     Route: 065
     Dates: start: 20120903, end: 20121001
  10. RIBAVIRIN [Suspect]
     Active Substance: RIBAVIRIN
     Dosage: 2 DOSAGE FORM
     Route: 065
     Dates: start: 20130225, end: 20130527
  11. RIBAVIRIN [Suspect]
     Active Substance: RIBAVIRIN
     Dosage: 2 DOSAGE FORM
     Route: 065
     Dates: start: 20121014, end: 20121201
  12. RIBAVIRIN [Suspect]
     Active Substance: RIBAVIRIN
     Dosage: 2 DOSAGE FORM
     Route: 065
     Dates: start: 20130909, end: 20140310
  13. SOFOSBUVIR [Suspect]
     Active Substance: SOFOSBUVIR
     Indication: Hepatitis cholestatic
     Dosage: 400 MILLIGRAM, ONCE A DAY
     Route: 065
     Dates: start: 20130909
  14. DACLATASVIR [Suspect]
     Active Substance: DACLATASVIR
     Indication: Hepatitis cholestatic
     Dosage: 60 MILLIGRAM, ONCE A DAY
     Route: 065
     Dates: start: 20130225, end: 20130527
  15. TELAPREVIR [Suspect]
     Active Substance: TELAPREVIR
     Indication: Hepatitis cholestatic
     Dosage: 3 DOSAGE FORM
     Route: 065
     Dates: start: 20121014, end: 20121201
  16. TELAPREVIR [Suspect]
     Active Substance: TELAPREVIR
     Indication: Antiviral treatment
  17. PEGINTERFERON ALFA-2A [Concomitant]
     Active Substance: PEGINTERFERON ALFA-2A
     Indication: Hepatitis C
     Dosage: 180 MICROGRAM, EVERY WEEK
     Route: 065
  18. PEGINTERFERON ALFA-2A [Concomitant]
     Active Substance: PEGINTERFERON ALFA-2A
     Dosage: UNK
     Route: 065
     Dates: start: 20130225, end: 20130527
  19. PEGINTERFERON ALFA-2A [Concomitant]
     Active Substance: PEGINTERFERON ALFA-2A
     Dosage: UNK
     Route: 065
     Dates: start: 20120903, end: 20121001
  20. PEGINTERFERON ALFA-2A [Concomitant]
     Active Substance: PEGINTERFERON ALFA-2A
     Dosage: UNK
     Route: 065
     Dates: start: 20121014, end: 20121201
  21. PEGINTERFERON ALFA-2A [Concomitant]
     Active Substance: PEGINTERFERON ALFA-2A
     Dosage: UNK
     Route: 065
     Dates: start: 20130909, end: 20140310
  22. LINUM USITATISSIMUM SEED [Concomitant]
     Indication: Product used for unknown indication
     Dosage: UNK CREAM
     Route: 065
  23. CLOTRIMAZOLE [Concomitant]
     Active Substance: CLOTRIMAZOLE
     Indication: Product used for unknown indication
     Dosage: UNK
     Route: 065
     Dates: start: 2012

REACTIONS (25)
  - Hypogammaglobulinaemia [Recovered/Resolved]
  - Pancytopenia [Not Recovered/Not Resolved]
  - Myelosuppression [Unknown]
  - Ascites [Unknown]
  - Thrombocytopenia [Unknown]
  - Hypogammaglobulinaemia [Recovered/Resolved]
  - Hepatitis C [Unknown]
  - Neutropenia [Unknown]
  - Hepatic encephalopathy [Unknown]
  - Genital candidiasis [Unknown]
  - Upper respiratory tract infection [Unknown]
  - Hepatitis cholestatic [Recovered/Resolved]
  - Anal pruritus [Unknown]
  - Graft loss [Unknown]
  - Hepatic failure [Unknown]
  - Clostridium difficile infection [Recovered/Resolved]
  - Hepatic cirrhosis [Unknown]
  - Leukopenia [Unknown]
  - Anaemia [Unknown]
  - Urinary tract infection [Unknown]
  - Fibrosis [Unknown]
  - Oral candidiasis [Unknown]
  - Hypoalbuminaemia [Unknown]
  - Gastric ulcer [Recovered/Resolved]
  - Drug ineffective [Unknown]

NARRATIVE: CASE EVENT DATE: 20120101
